FAERS Safety Report 6545173-X (Version None)
Quarter: 2010Q1

REPORT INFORMATION
  Report Type: 
  Country: None (occurrence: None)
  Receive Date: 20100121
  Receipt Date: 20090305
  Transmission Date: 20100710
  Serious: Yes (Death)
  Sender: FDA-Public Use
  Company Number: US-KINGPHARMUSA00001-K200900284

PATIENT
  Sex: Female

DRUGS (1)
  1. EPIPEN [Suspect]
     Indication: FOOD ALLERGY
     Dosage: 0.3 MG, SINGLE, UNK
     Dates: start: 20070131, end: 20070131

REACTIONS (2)
  - DRUG INEFFECTIVE [None]
  - MALAISE [None]
